FAERS Safety Report 7177619-0 (Version None)
Quarter: 2010Q4

REPORT INFORMATION
  Report Type: 
  Country: None (occurrence: None)
  Receive Date: 20101220
  Receipt Date: 20101207
  Transmission Date: 20110411
  Serious: No
  Sender: FDA-Public Use
  Company Number: US-BIOGENIDEC-2010BI043449

PATIENT
  Sex: Female

DRUGS (4)
  1. AVONEX [Suspect]
     Indication: MULTIPLE SCLEROSIS
     Route: 030
     Dates: end: 20080224
  2. AVONEX [Suspect]
     Route: 030
     Dates: start: 20040803, end: 20051014
  3. AVONEX [Suspect]
     Route: 030
     Dates: start: 20000124
  4. AVONEX [Suspect]
     Route: 030
     Dates: start: 20090901

REACTIONS (15)
  - ANXIETY [None]
  - BACK PAIN [None]
  - FALL [None]
  - FOOT FRACTURE [None]
  - GRIP STRENGTH DECREASED [None]
  - HYPOTONIA [None]
  - LOSS OF CONTROL OF LEGS [None]
  - MUSCLE INJURY [None]
  - MUSCULAR WEAKNESS [None]
  - MUSCULOSKELETAL DISORDER [None]
  - OSTEOPOROSIS [None]
  - PAIN IN EXTREMITY [None]
  - PERONEAL NERVE PALSY [None]
  - SENSORY DISTURBANCE [None]
  - UPPER LIMB FRACTURE [None]
